FAERS Safety Report 9325931 (Version 3)
Quarter: 2013Q3

REPORT INFORMATION
  Report Type: Spontaneous
  Country: US (occurrence: US)
  Receive Date: 20130604
  Receipt Date: 20130820
  Transmission Date: 20140515
  Serious: Yes (Hospitalization)
  Sender: FDA-Public Use
  Company Number: US-PFIZER INC-2013167103

PATIENT
  Age: 85 Year
  Sex: Female
  Weight: 72.56 kg

DRUGS (7)
  1. REVATIO [Suspect]
     Indication: RESPIRATORY DISORDER
     Dosage: 20 MG, 2X/DAY
     Route: 048
  2. ADVAIR [Concomitant]
     Dosage: UNK
  3. LASIX [Concomitant]
     Dosage: UNK
  4. ZAFIRLUKAST [Concomitant]
     Dosage: 20 MG, UNK
  5. LORAZEPAM [Concomitant]
     Dosage: 5 MG, 1X/DAY
  6. ATORVASTATIN [Concomitant]
     Dosage: 80 MG, UNK
  7. VITAMIN B12 [Concomitant]
     Dosage: UNK

REACTIONS (1)
  - Fluid retention [Unknown]
